FAERS Safety Report 9845034 (Version 1)
Quarter: 2014Q1

REPORT INFORMATION
  Report Type: Spontaneous
  Country: US (occurrence: None)
  Receive Date: 20140123
  Receipt Date: 20140123
  Transmission Date: 20141002
  Serious: Yes (Death)
  Sender: FDA-Public Use
  Company Number: 2014AP000380

PATIENT
  Age: 44 Year
  Sex: Female

DRUGS (4)
  1. TRAZODONE HYDROCHLORIDE TABLETS [Suspect]
     Route: 048
  2. ACETAMINOPHEN W/HYDROCODONE [Suspect]
     Route: 048
  3. ALPRAZOLAM [Suspect]
     Route: 048
  4. ACETAMINOPHEN W/HYDROCODONE [Concomitant]

REACTIONS (1)
  - Intentional drug misuse [None]
